FAERS Safety Report 4727179-6 (Version None)
Quarter: 2005Q3

REPORT INFORMATION
  Report Type: 
  Country: None (occurrence: None)
  Receive Date: 20050726
  Receipt Date: 20050726
  Transmission Date: 20060218
  Serious: Yes (Other)
  Sender: FDA-Public Use
  Company Number: None

PATIENT
  Age: 69 Year
  Sex: Male
  Weight: 90.7 kg

DRUGS (26)
  1. AMBIEN [Suspect]
  2. GATIFLOXACIN 400MG/200ML D5W PREMIX [Concomitant]
  3. IPRATROPIUM BROMIDE [Concomitant]
  4. AZITHROMYCIN [Concomitant]
  5. CARBIDOPA + LEVODOPA [Concomitant]
  6. ASPIRIN [Concomitant]
  7. LORAZEPAM [Concomitant]
  8. PRAMIPEXOLE [Concomitant]
  9. RAMIPRIL [Concomitant]
  10. SIMVASTATIN [Concomitant]
  11. DOCUSATE SODIUM [Concomitant]
  12. CITALOPRAM [Concomitant]
  13. ACETAMINOPHEN [Concomitant]
  14. METHYLPREDNISOLONE SOD SUCC [Concomitant]
  15. DIAZEPAM [Concomitant]
  16. POTASSIUM CHLORIDE [Concomitant]
  17. METOPROLOL SUCCINATE [Concomitant]
  18. ISOSORBIDE MONONITRATE [Concomitant]
  19. FUROSEMIDE [Concomitant]
  20. ASPIRIN [Concomitant]
  21. NITROGLYCERIN [Concomitant]
  22. MENTHOL 10%/METHYL SALICYLATE [Concomitant]
  23. LACTULOSE [Concomitant]
  24. ALBUTEROL/IPRATROPIUM MDI [Concomitant]
  25. ACETAMINOPHEN [Concomitant]
  26. AZITHROMYCIN [Concomitant]

REACTIONS (1)
  - TREMOR [None]
